FAERS Safety Report 6355954-3 (Version None)
Quarter: 2009Q3

REPORT INFORMATION
  Report Type: 
  Country: None (occurrence: None)
  Receive Date: 20090915
  Receipt Date: 20090907
  Transmission Date: 20100115
  Serious: Yes (Other)
  Sender: FDA-Public Use
  Company Number: AT-ROCHE-654954

PATIENT
  Age: 66 Year
  Sex: Male

DRUGS (12)
  1. VALGANCICLOVIR HCL [Suspect]
     Route: 065
  2. MYCOPHENOLATE MOFETIL [Suspect]
     Route: 065
  3. MYCOPHENOLATE MOFETIL [Suspect]
     Route: 065
  4. RITUXIMAB [Suspect]
     Indication: ALLERGENIC DESENSITISATION PROCEDURE
     Dosage: PATIENT RECEIVED A SINGLE DOSE.
     Route: 065
  5. SULFAMETHOXAZOLE AND TRIMETHOPRIM [Suspect]
     Indication: ANTIFUNGAL PROPHYLAXIS
     Route: 065
  6. TACROLIMUS [Suspect]
     Dosage: FREQUENCY DAILY.
     Route: 065
  7. TACROLIMUS [Suspect]
     Dosage: TAPERED TO TARGET LEVEL OF 7.5 TO 10 NG/ML AFTER 3 MONTHS
     Route: 065
  8. PREDNISOLONE [Suspect]
     Route: 065
  9. PREDNISOLONE [Suspect]
     Dosage: DURING FIRST WEEK OF TRANSPLANT.
     Route: 065
  10. PREDNISOLONE [Suspect]
     Dosage: TAPERED TO EQUAL OR LESS THAN 10 MG DAILY
     Route: 065
  11. DEXAMETHASONE [Suspect]
     Dosage: INTRAOPERATIVELY.
     Route: 065
  12. IMMUNE GLOBULIN INTRAVENOUS (HUMAN) [Suspect]
     Indication: ALLERGENIC DESENSITISATION PROCEDURE
     Dosage: SINGLE DOSE OF 0.5 GM/KG, 4 TO 6 DAYS PRIOR TRANSPLANT.
     Route: 042

REACTIONS (3)
  - BK VIRUS INFECTION [None]
  - LYMPHOCELE [None]
  - URINARY TRACT INFECTION [None]
